FAERS Safety Report 24800269 (Version 1)
Quarter: 2025Q1

REPORT INFORMATION
  Report Type: Report from Study
  Country: US (occurrence: US)
  Receive Date: 20250102
  Receipt Date: 20250102
  Transmission Date: 20250408
  Serious: Yes (Death)
  Sender: SERVIER
  Company Number: US-SERVIER-S24014591

PATIENT

DRUGS (2)
  1. VORASIDENIB [Suspect]
     Active Substance: VORASIDENIB
     Indication: Gallbladder cancer
     Dosage: 40 MG, QD
     Route: 048
     Dates: start: 20241022
  2. FLOXURIDINE [Concomitant]
     Active Substance: FLOXURIDINE
     Indication: Gallbladder cancer
     Route: 065

REACTIONS (3)
  - Death [Fatal]
  - Nausea [Recovering/Resolving]
  - Off label use [Recovered/Resolved]

NARRATIVE: CASE EVENT DATE: 20240101
